FAERS Safety Report 8110352-7 (Version None)
Quarter: 2012Q1

REPORT INFORMATION
  Report Type: 
  Country: None (occurrence: None)
  Receive Date: 20120202
  Receipt Date: 20120125
  Transmission Date: 20120608
  Serious: No
  Sender: FDA-Public Use
  Company Number: US-B.I. PHARMACEUTICALS,INC./RIDGEFIELD-2012-BP-01526BP

PATIENT
  Sex: Male

DRUGS (16)
  1. AMBIEN [Concomitant]
     Indication: INSOMNIA
     Dosage: 10 MG
     Route: 048
     Dates: start: 19880101
  2. NEXIUM [Concomitant]
     Indication: HYPERCHLORHYDRIA
     Dosage: 20 MG
     Route: 048
  3. VISTARIL [Concomitant]
     Indication: PRURITUS
     Dosage: 100 MG
     Route: 048
     Dates: start: 19880101
  4. ADVAIR DISKUS 100/50 [Concomitant]
     Indication: BRONCHITIS CHRONIC
     Dosage: 2 PUF
     Route: 055
     Dates: start: 20080101
  5. VERAPAMIL [Concomitant]
     Indication: HYPERTENSION
     Dosage: 120 MG
     Route: 048
  6. SPIRIVA [Suspect]
     Indication: BRONCHITIS CHRONIC
     Dosage: 18 MCG
     Route: 055
     Dates: start: 20080101, end: 20111201
  7. ASPIRIN [Concomitant]
     Indication: PROPHYLAXIS
     Dosage: 81 MG
     Route: 048
  8. VENTOLIN HFA [Concomitant]
     Indication: BRONCHITIS CHRONIC
     Dosage: 12 PUF
     Route: 055
     Dates: start: 20080101
  9. LORCET-HD [Concomitant]
     Indication: BACK PAIN
     Route: 048
     Dates: start: 19880101
  10. SENOKOT [Concomitant]
     Indication: CONSTIPATION
     Route: 048
     Dates: start: 19880101
  11. FLEXERIL [Concomitant]
     Indication: MUSCLE SPASMS
     Dates: start: 19880101, end: 20110101
  12. METOPROLOL [Concomitant]
     Indication: HYPERTENSION
     Dosage: 25 MG
     Route: 048
  13. SPIRIVA [Suspect]
     Dosage: 18 MCG
     Route: 055
     Dates: start: 20120101
  14. CYCLOBENZAPRINE [Concomitant]
     Indication: MUSCLE SPASMS
     Dosage: 20 MG
     Route: 048
     Dates: start: 20110101
  15. ZONEGRAN [Concomitant]
     Indication: BACK PAIN
     Dosage: 200 MG
     Route: 048
     Dates: start: 19880101
  16. PRAVASTATIN [Concomitant]
     Indication: BLOOD CHOLESTEROL INCREASED
     Dosage: 40 MG
     Route: 048

REACTIONS (4)
  - DYSPNOEA [None]
  - DRY MOUTH [None]
  - DRUG INEFFECTIVE [None]
  - CONSTIPATION [None]
